FAERS Safety Report 6464544-3 (Version None)
Quarter: 2009Q4

REPORT INFORMATION
  Report Type: 
  Country: None (occurrence: None)
  Receive Date: 20091201
  Receipt Date: 20091124
  Transmission Date: 20100525
  Serious: Yes (Other)
  Sender: FDA-Public Use
  Company Number: GB-PFIZER INC-2009302500

PATIENT

DRUGS (1)
  1. CELSENTRI [Suspect]

REACTIONS (1)
  - GASTROSTOMY TUBE INSERTION [None]
